FAERS Safety Report 7427296-6 (Version None)
Quarter: 2011Q2

REPORT INFORMATION
  Report Type: 
  Country: None (occurrence: None)
  Receive Date: 20110420
  Receipt Date: 20110418
  Transmission Date: 20111010
  Serious: No
  Sender: FDA-Public Use
  Company Number: US-PFIZER INC-2011083693

PATIENT
  Sex: Male
  Weight: 71.202 kg

DRUGS (16)
  1. TRAZODONE [Concomitant]
     Indication: SLEEP DISORDER
  2. DIPYRIDAMOLE [Concomitant]
     Dosage: 75 MG, 3X/DAY
  3. SERTRALINE [Concomitant]
     Dosage: 50 MG, DAILY
  4. CHANTIX [Suspect]
     Indication: SMOKING CESSATION THERAPY
     Dosage: 0.5 MG, 2X/DAY
     Route: 048
     Dates: start: 20110404, end: 20110401
  5. PRAZOSIN HCL [Concomitant]
     Indication: BLOOD PRESSURE ABNORMAL
     Dosage: 2 MG, 2X/DAY
     Route: 048
  6. METFORMIN [Concomitant]
     Dosage: 1000 MG, 2X/DAY
  7. HYDROCODONE [Concomitant]
     Indication: PAIN
     Dosage: UNK
  8. SIMVASTATIN [Concomitant]
     Dosage: 20 MG, DAILY
  9. INSULIN [Concomitant]
     Indication: DIABETES MELLITUS
     Dosage: 25 UNITS IN THE MORNING AND 20 UNITS AT NIGHT
  10. INSULIN [Concomitant]
     Dosage: UNK
  11. METOPROLOL TARTRATE [Concomitant]
     Indication: BLOOD PRESSURE ABNORMAL
     Dosage: 25 MG, 2X/DAY
     Route: 048
  12. LISINOPRIL AND HYDROCHLOROTHIAZIDE [Concomitant]
     Indication: DIURETIC THERAPY
     Dosage: 5/12.5 MG 2X/DAY
     Route: 048
  13. HYDROCHLOROTHIAZIDE [Concomitant]
     Dosage: 12.5 MG, UNK
  14. TRAZODONE [Concomitant]
     Indication: DEPRESSION
     Dosage: 400 MG, 1X/DAY
     Route: 048
  15. LISINOPRIL [Concomitant]
     Dosage: 20 MG, UNK
  16. PRAZOSIN [Concomitant]
     Indication: NIGHTMARE
     Dosage: 2 MG, DAILY

REACTIONS (10)
  - NAUSEA [None]
  - FATIGUE [None]
  - ABDOMINAL DISTENSION [None]
  - PAIN [None]
  - FLATULENCE [None]
  - DEHYDRATION [None]
  - DIARRHOEA [None]
  - RETCHING [None]
  - VOMITING [None]
  - MALAISE [None]
